FAERS Safety Report 4887306-7 (Version None)
Quarter: 2005Q4

REPORT INFORMATION
  Report Type: 
  Country: None (occurrence: None)
  Receive Date: 20051220
  Receipt Date: 20050427
  Transmission Date: 20060501
  Serious: Yes (Other)
  Sender: FDA-Public Use
  Company Number: HQWYE594509MAY05

PATIENT
  Age: 46 Year
  Sex: Female

DRUGS (5)
  1. EFFEXOR XR [Suspect]
     Indication: DEPRESSION
     Dosage: SEE IMAGE
     Route: 048
     Dates: start: 20020101
  2. NEURONTIN [Suspect]
     Dosage: 600 MG 1 X PER 1 DAY
  3. SOMA [Suspect]
     Dosage: 300 MG 1 X PER 1 DAY
  4. ... [Concomitant]
  5. .. [Concomitant]

REACTIONS (3)
  - DRUG INTERACTION [None]
  - FEELING ABNORMAL [None]
  - NERVOUSNESS [None]
